FAERS Safety Report 6390203-1 (Version None)
Quarter: 2009Q4

REPORT INFORMATION
  Report Type: 
  Country: None (occurrence: None)
  Receive Date: 20091006
  Receipt Date: 20090930
  Transmission Date: 20100525
  Serious: Yes (Hospitalization)
  Sender: FDA-Public Use
  Company Number: A0807948A

PATIENT
  Sex: Male

DRUGS (3)
  1. AVANDIA [Suspect]
     Dosage: 4MG PER DAY
     Route: 048
  2. MVI W/MINERALS + GINSENG [Concomitant]
     Dosage: 1TAB PER DAY
     Route: 048
     Dates: start: 20070101
  3. SIMVASTATIN [Concomitant]
     Route: 048
     Dates: start: 20070101

REACTIONS (3)
  - DIABETES MELLITUS INADEQUATE CONTROL [None]
  - FOOT AMPUTATION [None]
  - HOSPITALISATION [None]
